FAERS Safety Report 25812521 (Version 1)
Quarter: 2025Q3

REPORT INFORMATION
  Report Type: Spontaneous
  Country: EU (occurrence: EU)
  Receive Date: 20250917
  Receipt Date: 20250917
  Transmission Date: 20251021
  Serious: Yes (Hospitalization, Other)
  Sender: Medicap Laboratories
  Company Number: EU-Medicap-000064

PATIENT
  Age: 18 Year
  Sex: Female
  Weight: 55 kg

DRUGS (1)
  1. VENLAFAXINE [Suspect]
     Active Substance: VENLAFAXINE HYDROCHLORIDE
     Indication: Product used for unknown indication
     Route: 065

REACTIONS (22)
  - Cardiac arrest [Recovered/Resolved]
  - Toxicity to various agents [Unknown]
  - Multiple organ dysfunction syndrome [Unknown]
  - Hypoglycaemia [Unknown]
  - Circulatory collapse [Recovered/Resolved]
  - Renal failure [Recovered/Resolved]
  - Coagulopathy [Unknown]
  - Harlequin syndrome [Recovered/Resolved]
  - Small intestinal perforation [Recovered/Resolved]
  - Akinesia [Recovered/Resolved]
  - Ischaemia [Unknown]
  - Compartment syndrome [Unknown]
  - Seizure [Recovered/Resolved]
  - Hypotension [Recovered/Resolved]
  - Sinus tachycardia [Recovered/Resolved]
  - Ventricular tachycardia [Recovered/Resolved]
  - Loss of consciousness [Recovered/Resolved]
  - Rhabdomyolysis [Recovered/Resolved]
  - Mydriasis [Unknown]
  - Suicidal ideation [Unknown]
  - Hepatic failure [Recovered/Resolved]
  - Intentional overdose [Unknown]
